FAERS Safety Report 11542799 (Version 1)
Quarter: 2015Q3

REPORT INFORMATION
  Report Type: Spontaneous
  Country: SA (occurrence: SA)
  Receive Date: 20150923
  Receipt Date: 20150923
  Transmission Date: 20151125
  Serious: Yes (Hospitalization)
  Sender: FDA-Public Use
  Company Number: SA-BAYER-2015-421851

PATIENT
  Age: 29 Year
  Sex: Male

DRUGS (1)
  1. BETAFERON [Suspect]
     Active Substance: INTERFERON BETA-1B
     Indication: MULTIPLE SCLEROSIS

REACTIONS (4)
  - Hypoaesthesia [Not Recovered/Not Resolved]
  - Injection site abscess [Recovered/Resolved]
  - Injection site inflammation [Recovered/Resolved]
  - Erythema [Recovered/Resolved]
